FAERS Safety Report 7117335-4 (Version None)
Quarter: 2010Q4

REPORT INFORMATION
  Report Type: 
  Country: None (occurrence: None)
  Receive Date: 20101122
  Receipt Date: 20101110
  Transmission Date: 20110411
  Serious: Yes (Other)
  Sender: FDA-Public Use
  Company Number: US-PFIZER INC-2010122606

PATIENT
  Sex: Female
  Weight: 68.027 kg

DRUGS (5)
  1. GEODON [Suspect]
     Indication: BIPOLAR DISORDER
     Dosage: 160 MG, 1X/DAY
     Route: 048
     Dates: start: 20061201, end: 20100920
  2. GEODON [Suspect]
     Dosage: 80 MG, 1X/DAY
     Dates: start: 20100916, end: 20100920
  3. TOPAMAX [Concomitant]
     Dosage: 100 MG, 2X/DAY
  4. TOPAMAX [Concomitant]
  5. CARBAMAZEPINE [Concomitant]
     Dosage: 200 MG, TWO EVERY MORNING AND THREE AT NIGHT

REACTIONS (8)
  - ARTHRITIS [None]
  - DRY MOUTH [None]
  - DYSKINESIA [None]
  - EXOSTOSIS [None]
  - INSOMNIA [None]
  - LIP DRY [None]
  - STOMATITIS [None]
  - TARDIVE DYSKINESIA [None]
